FAERS Safety Report 9511905 (Version 1)
Quarter: 2013Q3

REPORT INFORMATION
  Report Type: Spontaneous
  Country: GB (occurrence: None)
  Receive Date: 20130906
  Receipt Date: 20130906
  Transmission Date: 20140515
  Serious: Yes (Hospitalization)
  Sender: FDA-Public Use
  Company Number: GER/UKI/13/0034395

PATIENT
  Age: 68 Year
  Sex: Male

DRUGS (3)
  1. AMLODIPINE [Suspect]
     Indication: PRODUCT USED FOR UNKNOWN INDICATION
     Dosage: 5 MG, 1 IN 1 D, ORAL
     Route: 048
     Dates: start: 20121201
  2. PRAVASTATIN (PRAVASTATIN) [Suspect]
     Dosage: 40 MG, 1 IN 1 D, ORAL
     Route: 048
     Dates: start: 20121201
  3. RAMIPRIL (RAMIPRIL) [Suspect]
     Dosage: 2.5 MG, 1 IN 1 D, ORAL
     Route: 048
     Dates: start: 20121201

REACTIONS (2)
  - Immune thrombocytopenic purpura [None]
  - Mouth ulceration [None]
